FAERS Safety Report 6398082-3 (Version None)
Quarter: 2009Q4

REPORT INFORMATION
  Report Type: 
  Country: None (occurrence: None)
  Receive Date: 20091013
  Receipt Date: 20090828
  Transmission Date: 20100525
  Serious: No
  Sender: FDA-Public Use
  Company Number: US-BAYER-200931584NA

PATIENT
  Age: 28 Year
  Sex: Female
  Weight: 70 kg

DRUGS (3)
  1. YAZ [Suspect]
     Indication: CONTRACEPTION
     Dates: start: 20090601, end: 20090801
  2. NASONEX [Concomitant]
  3. ZYRTEC GENERIC [Concomitant]
     Indication: SEASONAL ALLERGY

REACTIONS (1)
  - VISION BLURRED [None]
